FAERS Safety Report 4551004-X (Version None)
Quarter: 2005Q1

REPORT INFORMATION
  Report Type: 
  Country: None (occurrence: None)
  Receive Date: 20050113
  Receipt Date: 20040315
  Transmission Date: 20050727
  Serious: No
  Sender: FDA-Public Use
  Company Number: US-BRISTOL-MYERS SQUIBB COMPANY-12533931

PATIENT
  Sex: Female
  Weight: 141 kg

DRUGS (1)
  1. CARDIOLITE [Suspect]
     Dosage: DOSE VALUE:  REST DOSE: 8-10 MCI, STRESS DOSE: 42 MCI.
     Dates: start: 20040312, end: 20040312

REACTIONS (2)
  - CIRCUMORAL OEDEMA [None]
  - URTICARIA [None]
